FAERS Safety Report 5714499-1 (Version None)
Quarter: 2008Q2

REPORT INFORMATION
  Report Type: 
  Country: None (occurrence: None)
  Receive Date: 20080423
  Receipt Date: 20080415
  Transmission Date: 20081010
  Serious: Yes (Other)
  Sender: FDA-Public Use
  Company Number: PHHY2008JP05819

PATIENT
  Age: 56 Year
  Sex: Female

DRUGS (5)
  1. ZOMETA [Suspect]
     Indication: METASTASES TO BONE
     Dosage: 4 MG
     Route: 042
     Dates: start: 20070801, end: 20080304
  2. FEMARA [Concomitant]
     Dosage: 2.5 MG/DAY
     Route: 048
  3. MS CONTIN [Concomitant]
  4. GLYSENNID [Concomitant]
  5. LAXOBERON [Concomitant]
     Route: 065

REACTIONS (2)
  - JAW DISORDER [None]
  - OSTEONECROSIS [None]
